FAERS Safety Report 21300670 (Version 1)
Quarter: 2022Q3

REPORT INFORMATION
  Report Type: Spontaneous
  Country: GB (occurrence: GB)
  Receive Date: 20220907
  Receipt Date: 20220907
  Transmission Date: 20221027
  Serious: Yes (Other)
  Sender: FDA-Public Use
  Company Number: GB-MHRA-MED-202208251253480440-WYRMC

PATIENT
  Age: 78 Year
  Sex: Female
  Weight: 65 kg

DRUGS (2)
  1. ZOLEDRONIC ACID [Suspect]
     Active Substance: ZOLEDRONIC ACID
     Indication: Breast cancer
     Dosage: UNK
     Dates: start: 20220725, end: 20220725
  2. ANASTROZOLE [Concomitant]
     Active Substance: ANASTROZOLE
     Indication: Breast cancer
     Dosage: UNK
     Dates: end: 20220624

REACTIONS (10)
  - Bone pain [Recovering/Resolving]
  - Paraesthesia [Unknown]
  - Heart rate irregular [Unknown]
  - Fatigue [Unknown]
  - Hypoaesthesia [Unknown]
  - Pollakiuria [Unknown]
  - Pain in extremity [Unknown]
  - Nausea [Unknown]
  - Headache [Unknown]
  - Dysstasia [Unknown]

NARRATIVE: CASE EVENT DATE: 20220725
